FAERS Safety Report 15760610 (Version 1)
Quarter: 2018Q4

REPORT INFORMATION
  Report Type: Spontaneous
  Country: US (occurrence: US)
  Receive Date: 20181225
  Receipt Date: 20181225
  Transmission Date: 20190205
  Serious: Yes (Disabling, Other)
  Sender: FDA-Public Use
  Company Number: None

PATIENT
  Age: 27 Year
  Sex: Female
  Weight: 60.75 kg

DRUGS (1)
  1. ONCE-A-DAY LAMOTRIGINE EXTENDED-RELEASE TABLETS, USP [Suspect]
     Active Substance: LAMOTRIGINE
     Indication: EPILEPSY
     Dosage: ?          QUANTITY:1 TABLET(S);?
     Route: 048
     Dates: start: 20181204, end: 20181221

REACTIONS (3)
  - Generalised tonic-clonic seizure [None]
  - Drug level decreased [None]
  - Product quality issue [None]

NARRATIVE: CASE EVENT DATE: 20181220
